FAERS Safety Report 11129017 (Version 1)
Quarter: 2015Q2

REPORT INFORMATION
  Report Type: Spontaneous
  Country: GB (occurrence: GB)
  Receive Date: 20150521
  Receipt Date: 20150521
  Transmission Date: 20150821
  Serious: Yes (Hospitalization, Other)
  Sender: FDA-Public Use
  Company Number: GB-ASTRAZENECA-2015SE44770

PATIENT
  Age: 67 Year
  Sex: Female

DRUGS (12)
  1. OMEPRAZOLE. [Suspect]
     Active Substance: OMEPRAZOLE
     Indication: HELICOBACTER INFECTION
     Route: 048
  2. OMEPRAZOLE. [Suspect]
     Active Substance: OMEPRAZOLE
     Indication: HELICOBACTER INFECTION
     Route: 048
  3. OMEPRAZOLE. [Suspect]
     Active Substance: OMEPRAZOLE
     Indication: GASTROOESOPHAGEAL REFLUX PROPHYLAXIS
     Route: 048
  4. BENDROFLUAZIDE [Suspect]
     Active Substance: BENDROFLUMETHIAZIDE
  5. OMEPRAZOLE. [Suspect]
     Active Substance: OMEPRAZOLE
     Indication: GASTROINTESTINAL DISORDER
     Route: 048
  6. OMEPRAZOLE. [Suspect]
     Active Substance: OMEPRAZOLE
     Indication: GASTROINTESTINAL DISORDER
     Route: 048
  7. OMEPRAZOLE. [Suspect]
     Active Substance: OMEPRAZOLE
     Indication: GASTROINTESTINAL DISORDER
     Route: 048
  8. OMEPRAZOLE. [Suspect]
     Active Substance: OMEPRAZOLE
     Indication: GASTROOESOPHAGEAL REFLUX PROPHYLAXIS
     Route: 048
  9. SERTRALINE [Suspect]
     Active Substance: SERTRALINE HYDROCHLORIDE
     Indication: DEPRESSION
  10. OMEPRAZOLE. [Suspect]
     Active Substance: OMEPRAZOLE
     Indication: HELICOBACTER INFECTION
     Route: 048
  11. TEMAZEPAM. [Concomitant]
     Active Substance: TEMAZEPAM
  12. OMEPRAZOLE. [Suspect]
     Active Substance: OMEPRAZOLE
     Indication: GASTROOESOPHAGEAL REFLUX PROPHYLAXIS
     Route: 048

REACTIONS (4)
  - Acute psychosis [Not Recovered/Not Resolved]
  - Hyponatraemia [Recovered/Resolved]
  - Urinary tract infection [Recovering/Resolving]
  - Seizure [Recovering/Resolving]

NARRATIVE: CASE EVENT DATE: 20140310
